FAERS Safety Report 9927504 (Version 2)
Quarter: 2014Q1

REPORT INFORMATION
  Report Type: Report from Study
  Country: PT (occurrence: PT)
  Receive Date: 20140227
  Receipt Date: 20140227
  Transmission Date: 20141002
  Serious: Yes (Hospitalization)
  Sender: FDA-Public Use
  Company Number: PT-AMGEN-PRTCT2013041446

PATIENT
  Age: 61 Year
  Sex: Male

DRUGS (10)
  1. DENOSUMAB [Suspect]
     Indication: HORMONE-REFRACTORY PROSTATE CANCER
     Dosage: UNK UNK, QMO
     Route: 058
     Dates: start: 20110113, end: 20130502
  2. VITAMIN D [Concomitant]
     Dosage: 400 IU, QD
     Route: 048
  3. CALCIUM CARBONATE [Concomitant]
     Dosage: 1000 MG, QD
     Route: 048
  4. CIPROTERONA [Concomitant]
     Dosage: 100 MG, TID
     Route: 048
     Dates: start: 20120628
  5. DOCETAXEL [Concomitant]
     Dosage: 156.75 MG, Q3WK
     Route: 042
     Dates: start: 20121119
  6. ONDANSETRON [Concomitant]
     Dosage: 8 MG, UNK
     Dates: start: 20121119
  7. DEXAMETHASONE [Concomitant]
     Dosage: 20 MG, UNK
     Route: 042
     Dates: start: 20121119
  8. CIMETIDINE [Concomitant]
     Dosage: 300 MG, UNK
     Route: 042
     Dates: start: 20121119
  9. HYDROXYZINE [Concomitant]
     Dosage: 50 MG, UNK
     Route: 042
     Dates: start: 20121119
  10. PREDNISOLONE [Concomitant]
     Dosage: 5 MG, BID
     Route: 048
     Dates: start: 20121119

REACTIONS (2)
  - Tooth infection [Not Recovered/Not Resolved]
  - Osteonecrosis of jaw [Recovered/Resolved]
